FAERS Safety Report 7652655-6 (Version None)
Quarter: 2011Q3

REPORT INFORMATION
  Report Type: 
  Country: None (occurrence: None)
  Receive Date: 20110728
  Receipt Date: 20110714
  Transmission Date: 20111222
  Serious: Yes (Other)
  Sender: FDA-Public Use
  Company Number: 2011P1007608

PATIENT
  Age: 83 Year
  Sex: Female

DRUGS (9)
  1. LASIX [Concomitant]
  2. WARFARIN SODIUM [Suspect]
     Indication: DEEP VEIN THROMBOSIS
     Dosage: 6 MG;3 DAYS;WK;PO ; 9 MG;4 DAYS;WK;PO ; 9 MG;6 DAYS;WK;PO ; 6 MG;ONCE WEEKLY;PO
     Route: 048
     Dates: start: 20100801, end: 20110518
  3. WARFARIN SODIUM [Suspect]
     Indication: DEEP VEIN THROMBOSIS
     Dosage: 6 MG;3 DAYS;WK;PO ; 9 MG;4 DAYS;WK;PO ; 9 MG;6 DAYS;WK;PO ; 6 MG;ONCE WEEKLY;PO
     Route: 048
     Dates: start: 20110518
  4. WARFARIN SODIUM [Suspect]
     Indication: DEEP VEIN THROMBOSIS
     Dosage: 6 MG;3 DAYS;WK;PO ; 9 MG;4 DAYS;WK;PO ; 9 MG;6 DAYS;WK;PO ; 6 MG;ONCE WEEKLY;PO
     Route: 048
     Dates: start: 20100801, end: 20110518
  5. WARFARIN SODIUM [Suspect]
     Indication: DEEP VEIN THROMBOSIS
     Dosage: 6 MG;3 DAYS;WK;PO ; 9 MG;4 DAYS;WK;PO ; 9 MG;6 DAYS;WK;PO ; 6 MG;ONCE WEEKLY;PO
     Route: 048
     Dates: start: 20110518
  6. VITAMIN D [Concomitant]
  7. POTASSIUM [Concomitant]
  8. FOLIC ACID [Concomitant]
  9. ASCORBIC ACID [Concomitant]

REACTIONS (4)
  - INTERNATIONAL NORMALISED RATIO DECREASED [None]
  - LUNG NEOPLASM MALIGNANT [None]
  - REFUSAL OF TREATMENT BY PATIENT [None]
  - PRODUCT QUALITY ISSUE [None]
